FAERS Safety Report 8133313-0 (Version None)
Quarter: 2012Q1

REPORT INFORMATION
  Report Type: 
  Country: None (occurrence: None)
  Receive Date: 20120207
  Receipt Date: 20111214
  Transmission Date: 20120608
  Serious: Yes (Hospitalization)
  Sender: FDA-Public Use
  Company Number: TIR-00928

PATIENT
  Age: 68 Year
  Sex: Female

DRUGS (1)
  1. LEVOTHYROXINE SODIUM [Suspect]
     Indication: HYPOTHYROIDISM
     Dosage: 25 UG
     Route: 048

REACTIONS (3)
  - MEMORY IMPAIRMENT [None]
  - ALTERED STATE OF CONSCIOUSNESS [None]
  - STATUS EPILEPTICUS [None]
